FAERS Safety Report 10141957 (Version 2)
Quarter: 2014Q2

REPORT INFORMATION
  Report Type: Spontaneous
  Country: US (occurrence: US)
  Receive Date: 20140429
  Receipt Date: 20140430
  Transmission Date: 20141212
  Serious: No
  Sender: FDA-Public Use
  Company Number: US-ASTRAZENECA-2014SE19061

PATIENT
  Age: 16 Year
  Sex: Female

DRUGS (5)
  1. PULMICORT FLEXHALER [Suspect]
     Dosage: 180 MCG 1 PUFF DAILY
     Route: 055
     Dates: start: 20140305
  2. PULMICORT FLEXHALER [Suspect]
     Dosage: 180 MCG 2 PUFF DAILY
     Route: 055
     Dates: start: 20140305
  3. DULERA [Concomitant]
  4. ZOLPINEX [Concomitant]
  5. STEROIDS [Concomitant]

REACTIONS (4)
  - Feeling abnormal [Unknown]
  - Wheezing [Unknown]
  - Circumstance or information capable of leading to medication error [Unknown]
  - Off label use [Unknown]
